FAERS Safety Report 15003646 (Version 1)
Quarter: 2018Q2

REPORT INFORMATION
  Report Type: Report from Study
  Country: US (occurrence: US)
  Receive Date: 20180613
  Receipt Date: 20180613
  Transmission Date: 20180711
  Serious: Yes (Other)
  Sender: FDA-Public Use
  Company Number: US-ROCHE-2137613

PATIENT
  Sex: Male
  Weight: 95.9 kg

DRUGS (1)
  1. NUTROPIN AQ [Suspect]
     Active Substance: SOMATROPIN
     Indication: HYPOPITUITARISM
     Dosage: NUSPIN 20, 0.2 MG DOSING INCREMENTS, 7 INJECTIONS PER WEEK, DISPENSED 1 MONTH SUPPLY AND REFILLED TW
     Route: 058

REACTIONS (5)
  - Blood urine present [Unknown]
  - Mean cell haemoglobin decreased [Unknown]
  - Blood urea nitrogen/creatinine ratio increased [Unknown]
  - Epistaxis [Unknown]
  - Increased tendency to bruise [Unknown]
